FAERS Safety Report 8767203 (Version 1)
Quarter: 2012Q4

REPORT INFORMATION
  Report Type: Report from Study
  Country: US (occurrence: US)
  Receive Date: 20120904
  Receipt Date: 20120904
  Transmission Date: 20130627
  Serious: Yes (Hospitalization)
  Sender: FDA-Public Use
  Company Number: US-GLAXOSMITHKLINE-A0989560B

PATIENT
  Age: 65 Year
  Sex: Male

DRUGS (22)
  1. PAZOPANIB [Suspect]
     Indication: SARCOMA
     Route: 048
     Dates: start: 20120719
  2. GEMCITABINE [Suspect]
     Indication: SARCOMA
     Dates: start: 20120719
  3. TAXOTERE [Suspect]
     Indication: SARCOMA
     Dates: start: 20120719
  4. ACETAMINOPHEN [Concomitant]
     Dates: start: 20120727, end: 20120731
  5. ALLOPURINOL [Concomitant]
     Dates: start: 20120712
  6. AMBIEN [Concomitant]
     Dates: start: 20120726
  7. ASPIRIN [Concomitant]
     Dates: start: 20120712
  8. ATORVASTATIN [Concomitant]
     Dates: start: 20120712
  9. ESOMEPRAZOLE [Concomitant]
     Dates: start: 20120712
  10. FLUTICASONE [Concomitant]
     Dates: start: 20120712
  11. HYDROCHLOROTHIAZIDE [Concomitant]
     Dates: start: 20120802
  12. IBUPROFEN [Concomitant]
     Dates: start: 20120731
  13. IMODIUM [Concomitant]
     Dates: start: 20120731
  14. LISINOPRIL [Concomitant]
     Dates: start: 20120801
  15. LORAZEPAM [Concomitant]
     Dates: start: 20120726
  16. MAALOX + BENADRYL + LIDOCAINE [Concomitant]
     Dates: start: 20120801
  17. MELOXICAM [Concomitant]
     Dates: start: 20120712
  18. MIRTAZAPINE [Concomitant]
     Dates: start: 20120712
  19. NORMAL SALINE [Concomitant]
     Dates: start: 20120803
  20. PEGFILGRASTIM [Concomitant]
     Dates: start: 20120727, end: 20120727
  21. TRIAMCINOLONE [Concomitant]
     Dates: start: 20120731
  22. VITAMIN D [Concomitant]
     Dates: start: 20120712

REACTIONS (4)
  - Fatigue [Unknown]
  - Nausea [Unknown]
  - Pharyngeal inflammation [Unknown]
  - Vomiting [Unknown]
